FAERS Safety Report 7971798-0 (Version None)
Quarter: 2011Q4

REPORT INFORMATION
  Report Type: 
  Country: None (occurrence: None)
  Receive Date: 20111212
  Receipt Date: 20111206
  Transmission Date: 20120403
  Serious: Yes (Hospitalization)
  Sender: FDA-Public Use
  Company Number: US-SANOFI-AVENTIS-2011SA079962

PATIENT
  Sex: Female

DRUGS (4)
  1. NOVOLOG [Concomitant]
  2. LANTUS [Suspect]
     Dosage: 50 UNITS IN THE MORNING AND 73 UNITS IN THE EVENING
     Route: 058
     Dates: end: 20110101
  3. LANTUS [Suspect]
     Dosage: 50 UNITS IN THE MORNING AND 73 UNITS IN THE EVENING
     Route: 058
     Dates: start: 20110101
  4. LANTUS [Suspect]
     Dosage: DOSE:20 UNIT(S)
     Route: 058
     Dates: start: 20110101

REACTIONS (2)
  - CATHETERISATION CARDIAC [None]
  - BLOOD GLUCOSE INCREASED [None]
